FAERS Safety Report 11603434 (Version 1)
Quarter: 2015Q4

REPORT INFORMATION
  Report Type: Spontaneous
  Country: US (occurrence: US)
  Receive Date: 20151007
  Receipt Date: 20151007
  Transmission Date: 20160304
  Serious: Yes (Hospitalization)
  Sender: FDA-Public Use
  Company Number: US-ROCHE-1642410

PATIENT
  Age: 72 Year
  Sex: Female
  Weight: 70.37 kg

DRUGS (1)
  1. ESBRIET [Suspect]
     Active Substance: PIRFENIDONE
     Indication: IDIOPATHIC PULMONARY FIBROSIS
     Dosage: TOTAL 2403 MG DAILY PO 3 CAPS PO TID
     Route: 048
     Dates: start: 20150626

REACTIONS (1)
  - Adrenal disorder [Unknown]

NARRATIVE: CASE EVENT DATE: 20150926
